FAERS Safety Report 13946187 (Version 3)
Quarter: 2018Q4

REPORT INFORMATION
  Report Type: Spontaneous
  Country: US (occurrence: US)
  Receive Date: 20170907
  Receipt Date: 20181023
  Transmission Date: 20190204
  Serious: Yes (Hospitalization)
  Sender: FDA-Public Use
  Company Number: US-DSJP-DSU-2017-135197

PATIENT

DRUGS (1)
  1. AZOR [Suspect]
     Active Substance: AMLODIPINE BESYLATE\OLMESARTAN MEDOXOMIL
     Indication: HYPERTENSION
     Dosage: 10-40 MG , QD
     Route: 048
     Dates: start: 20100703, end: 20160901

REACTIONS (11)
  - Hypotension [Unknown]
  - Diverticulitis [Unknown]
  - Clostridium difficile colitis [Unknown]
  - Oesophageal ulcer [Unknown]
  - Sprue-like enteropathy [Unknown]
  - Chronic gastritis [Unknown]
  - Hiatus hernia [Unknown]
  - Large intestine polyp [Unknown]
  - Colitis ulcerative [Unknown]
  - Acute kidney injury [Not Recovered/Not Resolved]
  - Haemorrhoids [Unknown]

NARRATIVE: CASE EVENT DATE: 2012
